FAERS Safety Report 9105766 (Version 1)
Quarter: 2013Q1

REPORT INFORMATION
  Report Type: Spontaneous
  Country: JP (occurrence: JP)
  Receive Date: 20130220
  Receipt Date: 20130220
  Transmission Date: 20140127
  Serious: Yes (Other)
  Sender: FDA-Public Use
  Company Number: JP-PFIZER INC-2013047381

PATIENT
  Age: 7 Year
  Sex: 0

DRUGS (1)
  1. ZITHROMAC [Suspect]
     Dosage: UNK
     Route: 048
     Dates: start: 20130204

REACTIONS (1)
  - Loss of consciousness [Recovered/Resolved]
